FAERS Safety Report 26111623 (Version 1)
Quarter: 2025Q4

REPORT INFORMATION
  Report Type: Spontaneous
  Country: EU (occurrence: EU)
  Receive Date: 20251202
  Receipt Date: 20251202
  Transmission Date: 20260118
  Serious: Yes (Other)
  Sender: RANBAXY
  Company Number: EU-BFARM-25005926

PATIENT
  Age: 88 Year
  Sex: Male
  Weight: 60 kg

DRUGS (1)
  1. CLOPIDOGREL [Suspect]
     Active Substance: CLOPIDOGREL BISULFATE
     Indication: Cerebellar ischaemia
     Dosage: 75 MILLIGRAM, DAILY
     Route: 048
     Dates: start: 20250505, end: 20250716

REACTIONS (1)
  - Leukopenia [Recovered/Resolved]

NARRATIVE: CASE EVENT DATE: 20250715
